FAERS Safety Report 10034118 (Version 1)
Quarter: 2014Q1

REPORT INFORMATION
  Report Type: Spontaneous
  Country: US (occurrence: None)
  Receive Date: 20140321
  Receipt Date: 20140321
  Transmission Date: 20141002
  Serious: Yes (Death)
  Sender: FDA-Public Use
  Company Number: US-LHC-2014015

PATIENT
  Age: 30 Year
  Sex: 0

DRUGS (3)
  1. CARBON DIOXIDE [Suspect]
     Indication: PERITONEAL DIALYSIS
     Dosage: INSUFFLATION
  2. CARBON DIOXIDE [Suspect]
     Indication: CATHETER PLACEMENT
     Dosage: INSUFFLATION
  3. CARBON DIOXIDE [Suspect]
     Indication: LAPAROSCOPIC SURGERY
     Dosage: INSUFFLATION

REACTIONS (4)
  - Hypotension [None]
  - Hypoxia [None]
  - Cardiac arrest [None]
  - Air embolism [None]
